FAERS Safety Report 9068998 (Version 1)
Quarter: 2013Q1

REPORT INFORMATION
  Report Type: Spontaneous
  Country: US (occurrence: US)
  Receive Date: 20130215
  Receipt Date: 20130215
  Transmission Date: 20140127
  Serious: Yes (Death)
  Sender: FDA-Public Use
  Company Number: US-BANPHARM-20130762

PATIENT
  Age: 39 Year
  Sex: Female

DRUGS (7)
  1. DIPHENHYDRAMINE AND ACETAMINOPHEN UNKNOWN PRODUCT [Suspect]
     Route: 048
  2. HYDROCODONE [Suspect]
     Route: 048
  3. DIAZEPAM [Suspect]
     Route: 048
  4. LISINOPRIL [Suspect]
     Route: 048
  5. TRAMADOL [Suspect]
     Route: 048
  6. PROMETHAZINE [Suspect]
     Route: 048
  7. TRAZODONE [Suspect]
     Route: 048

REACTIONS (1)
  - Cardio-respiratory arrest [Fatal]
